FAERS Safety Report 24705936 (Version 1)
Quarter: 2024Q4

REPORT INFORMATION
  Report Type: Spontaneous
  Country: KR (occurrence: KR)
  Receive Date: 20241206
  Receipt Date: 20241206
  Transmission Date: 20250114
  Serious: Yes (Death, Hospitalization, Other)
  Sender: PFIZER
  Company Number: KR-PFIZER INC-PV202400157300

PATIENT
  Age: 30 Year
  Sex: Male

DRUGS (7)
  1. MEROPENEM [Suspect]
     Active Substance: MEROPENEM
     Indication: Klebsiella infection
     Dosage: 2 G, 3X/DAY Q 8 HOURS
     Route: 042
  2. MEROPENEM [Suspect]
     Active Substance: MEROPENEM
     Dosage: 1 G, Q 8 HOURS
     Route: 042
  3. TIGECYCLINE [Suspect]
     Active Substance: TIGECYCLINE
     Indication: Klebsiella infection
     Dosage: 100 MG  LOADING
     Route: 042
  4. TIGECYCLINE [Suspect]
     Active Substance: TIGECYCLINE
     Dosage: 50 MG, Q 12 HOURS
     Route: 042
  5. AVIBACTAM SODIUM\CEFTAZIDIME [Suspect]
     Active Substance: AVIBACTAM SODIUM\CEFTAZIDIME
     Indication: Klebsiella infection
     Dosage: 0.75 G/0.1875 G  Q 12 HOURS
     Route: 042
  6. AMIKACIN [Suspect]
     Active Substance: AMIKACIN
     Indication: Klebsiella infection
     Dosage: 15 MG/KG, 24 HOURS
  7. AMIKACIN [Suspect]
     Active Substance: AMIKACIN
     Dosage: 600 MG, DAILY
     Route: 042

REACTIONS (1)
  - Drug ineffective [Fatal]
